FAERS Safety Report 6747139-3 (Version None)
Quarter: 2010Q2

REPORT INFORMATION
  Report Type: 
  Country: None (occurrence: None)
  Receive Date: 20100528
  Receipt Date: 20100518
  Transmission Date: 20101027
  Serious: Yes (Life-Threatening, Hospitalization)
  Sender: FDA-Public Use
  Company Number: DE-SANOFI-AVENTIS-2009SA006581

PATIENT
  Age: 84 Year
  Sex: Female
  Weight: 270 kg

DRUGS (6)
  1. QUENSYL [Suspect]
     Indication: RHEUMATOID ARTHRITIS
     Dosage: DAILY DOSE: 400 MG MILLGRAM(S) EVERY DAYS
     Route: 048
  2. RAMIPRIL [Concomitant]
     Route: 048
  3. AMLODIPINE [Concomitant]
  4. PREDNIHEXAL [Concomitant]
     Indication: DRUG USE FOR UNKNOWN INDICATION
  5. TEBONIN [Concomitant]
  6. DICLOFENAC [Concomitant]
     Dates: start: 20091001

REACTIONS (3)
  - ACUTE GENERALISED EXANTHEMATOUS PUSTULOSIS [None]
  - PSORIASIS [None]
  - SUBCORNEAL PUSTULAR DERMATOSIS [None]
